FAERS Safety Report 10387005 (Version 3)
Quarter: 2014Q3

REPORT INFORMATION
  Report Type: Other
  Country: GB (occurrence: GB)
  Receive Date: 20140815
  Receipt Date: 20140910
  Transmission Date: 20150326
  Serious: Yes (Other)
  Sender: FDA-Public Use
  Company Number: GB-MYLAN-2014M1000494

PATIENT

DRUGS (6)
  1. CANDESARTAN [Suspect]
     Active Substance: CANDESARTAN
     Indication: VENTRICULAR DYSFUNCTION
     Dosage: VARIABLE AMOUNTS NOT EXCEEDING16MG
     Dates: start: 20140102, end: 20140319
  2. WARFARIN [Concomitant]
     Active Substance: WARFARIN
     Indication: ATRIAL FIBRILLATION
     Dosage: 4.5 MG, UNK
  3. BISOPROLOL [Concomitant]
     Active Substance: BISOPROLOL
     Indication: ATRIAL FIBRILLATION
     Dosage: 5 MG, UNK
  4. LOSARTAN POTASSIUM. [Suspect]
     Active Substance: LOSARTAN POTASSIUM
     Indication: VENTRICULAR DYSFUNCTION
     Dosage: VARIED BETWEEN 8MG TO 60MG.
     Dates: start: 20140319, end: 20140701
  5. FUROSEMIDE. [Concomitant]
     Active Substance: FUROSEMIDE
     Dosage: NOW STOPPED
  6. NO DRUG NAME [Suspect]
     Active Substance: UNSPECIFIED INGREDIENT
     Indication: VENTRICULAR DYSFUNCTION
     Dosage: VARIED BETWEEN 8MG TO 60 MG
     Dates: start: 20140319, end: 20140701

REACTIONS (2)
  - Discomfort [Recovered/Resolved]
  - Peripheral swelling [Recovered/Resolved]

NARRATIVE: CASE EVENT DATE: 201402
